FAERS Safety Report 5505028-6 (Version None)
Quarter: 2007Q4

REPORT INFORMATION
  Report Type: 
  Country: None (occurrence: None)
  Receive Date: 20071102
  Receipt Date: 20071029
  Transmission Date: 20080405
  Serious: Yes (Other)
  Sender: FDA-Public Use
  Company Number: US-BAYER-200713527BCC

PATIENT
  Age: 21 Year
  Sex: Female
  Weight: 78 kg

DRUGS (3)
  1. ALKA SELTZER COLD + COUGH LIQUID [Suspect]
     Indication: COUGH
     Route: 048
     Dates: start: 20071028
  2. BIRTH CONTROL [Concomitant]
  3. HALLS EUCALYPTUS COUGH DROP [Concomitant]
     Dates: start: 20071028

REACTIONS (1)
  - HAEMOPTYSIS [None]
